FAERS Safety Report 6820982-8 (Version None)
Quarter: 2010Q3

REPORT INFORMATION
  Report Type: 
  Country: None (occurrence: None)
  Receive Date: 20100707
  Receipt Date: 20070816
  Transmission Date: 20110219
  Serious: No
  Sender: FDA-Public Use
  Company Number: US-PFIZER INC-2007069323

PATIENT
  Sex: Male

DRUGS (3)
  1. ZOLOFT [Suspect]
     Indication: DEPRESSION
  2. PEGASYS [Concomitant]
     Indication: HEPATITIS C VIRUS TEST
     Dates: start: 20070614
  3. RIBAVIRIN [Concomitant]
     Indication: HEPATITIS C VIRUS TEST
     Dates: start: 20070614

REACTIONS (1)
  - PANIC ATTACK [None]
